FAERS Safety Report 7432257-7 (Version None)
Quarter: 2011Q2

REPORT INFORMATION
  Report Type: 
  Country: None (occurrence: None)
  Receive Date: 20110422
  Receipt Date: 20110330
  Transmission Date: 20111010
  Serious: Yes (Other)
  Sender: FDA-Public Use
  Company Number: US-PFIZER INC-US-WYE-H16228410

PATIENT
  Sex: Female
  Weight: 58.1 kg

DRUGS (11)
  1. CITALOPRAM [Suspect]
     Dosage: UNK
  2. EFFEXOR [Suspect]
     Dosage: UNKNOWN
     Route: 065
  3. INTERFERON [Suspect]
  4. EFFEXOR [Suspect]
     Dosage: UNKNOWN
     Route: 065
  5. BUPROPION HYDROCHLORIDE [Concomitant]
     Route: 065
  6. NEURONTIN [Concomitant]
     Route: 065
  7. EFFEXOR [Suspect]
     Dosage: UNKNOWN
     Route: 065
  8. EFFEXOR [Suspect]
     Dosage: UNKNOWN
     Route: 065
  9. DULOXETINE [Suspect]
  10. MONTELUKAST [Suspect]
  11. EFFEXOR [Suspect]
     Dosage: UNKNOWN
     Route: 065

REACTIONS (10)
  - MUSCULOSKELETAL STIFFNESS [None]
  - ABDOMINAL PAIN UPPER [None]
  - PALPITATIONS [None]
  - HYPERHIDROSIS [None]
  - CARDIAC ARREST [None]
  - DEPRESSED MOOD [None]
  - PRURITUS [None]
  - NAUSEA [None]
  - MUSCULOSKELETAL PAIN [None]
  - PAIN [None]
